FAERS Safety Report 15121722 (Version 1)
Quarter: 2018Q3

REPORT INFORMATION
  Report Type: Report from Study
  Country: KR (occurrence: KR)
  Receive Date: 20180709
  Receipt Date: 20180709
  Transmission Date: 20181010
  Serious: Yes (Death, Hospitalization)
  Sender: FDA-Public Use
  Company Number: KR-ASTRAZENECA-2018SE75723

PATIENT
  Age: 21327 Day
  Sex: Female
  Weight: 64.8 kg

DRUGS (1)
  1. DURVALUMAB. [Suspect]
     Active Substance: DURVALUMAB
     Indication: SQUAMOUS CELL CARCINOMA OF HEAD AND NECK
     Route: 042
     Dates: start: 20180510, end: 20180530

REACTIONS (3)
  - Device related infection [Recovered/Resolved]
  - Vision blurred [Fatal]
  - Lung infection [Fatal]

NARRATIVE: CASE EVENT DATE: 20180526
